FAERS Safety Report 6285648-4 (Version None)
Quarter: 2009Q3

REPORT INFORMATION
  Report Type: 
  Country: None (occurrence: None)
  Receive Date: 20090724
  Receipt Date: 20090715
  Transmission Date: 20100115
  Serious: Yes (Hospitalization)
  Sender: FDA-Public Use
  Company Number: 2009008569

PATIENT
  Age: 38 Year
  Sex: Male

DRUGS (1)
  1. NUVIGIL [Suspect]
     Dosage: ORAL
     Route: 048
     Dates: start: 20090601

REACTIONS (1)
  - RENAL FAILURE [None]
